FAERS Safety Report 25350662 (Version 8)
Quarter: 2025Q3

REPORT INFORMATION
  Report Type: Report from Study
  Country: EU (occurrence: EU)
  Receive Date: 20250523
  Receipt Date: 20250813
  Transmission Date: 20251021
  Serious: Yes (Hospitalization)
  Sender: ABBVIE
  Company Number: EU-ABBVIE-6294493

PATIENT
  Age: 62 Year
  Sex: Male

DRUGS (3)
  1. FOSCARBIDOPA\FOSLEVODOPA [Suspect]
     Active Substance: FOSCARBIDOPA\FOSLEVODOPA
     Indication: Parkinson^s disease
     Route: 058
     Dates: start: 20250127
  2. FOSCARBIDOPA\FOSLEVODOPA [Suspect]
     Active Substance: FOSCARBIDOPA\FOSLEVODOPA
     Route: 058
     Dates: start: 202506
  3. HEPARIN [Suspect]
     Active Substance: HEPARIN SODIUM
     Indication: Product used for unknown indication
     Route: 058

REACTIONS (17)
  - Cholangitis acute [Unknown]
  - Akinesia [Recovering/Resolving]
  - Cholecystitis [Recovered/Resolved]
  - Weight decreased [Not Recovered/Not Resolved]
  - Hallucination [Unknown]
  - Infusion site haematoma [Recovering/Resolving]
  - Motor dysfunction [Unknown]
  - Anaemia [Recovered/Resolved]
  - Urine abnormality [Unknown]
  - Urine odour abnormal [Unknown]
  - Skin ulcer [Unknown]
  - Dysphonia [Unknown]
  - Bradykinesia [Unknown]
  - Hypokinesia [Unknown]
  - Gait inability [Unknown]
  - Hallucination, visual [Not Recovered/Not Resolved]
  - C-reactive protein increased [Unknown]

NARRATIVE: CASE EVENT DATE: 20250101
